FAERS Safety Report 15263128 (Version 2)
Quarter: 2018Q3

REPORT INFORMATION
  Report Type: Report from Study
  Country: None (occurrence: US)
  Receive Date: 20180810
  Receipt Date: 20180831
  Transmission Date: 20181010
  Serious: Yes (Death, Hospitalization, Other)
  Sender: FDA-Public Use
  Company Number: US-ABBVIE-18K-163-2445580-00

PATIENT
  Age: 63 Year
  Sex: Male
  Weight: 176.15 kg

DRUGS (1)
  1. HUMIRA [Suspect]
     Active Substance: ADALIMUMAB
     Indication: PSORIATIC ARTHROPATHY
     Route: 058
     Dates: start: 201803

REACTIONS (13)
  - Hepatorenal syndrome [Not Recovered/Not Resolved]
  - Acute kidney injury [Fatal]
  - Hepatic cirrhosis [Not Recovered/Not Resolved]
  - Ascites [Not Recovered/Not Resolved]
  - Hyperkalaemia [Unknown]
  - Renal tubular necrosis [Not Recovered/Not Resolved]
  - Blood creatinine increased [Unknown]
  - Respiratory failure [Not Recovered/Not Resolved]
  - Bilirubin conjugated increased [Unknown]
  - Hepatic failure [Unknown]
  - Glomerular filtration rate decreased [Unknown]
  - Metastatic neoplasm [Not Recovered/Not Resolved]
  - Hepatic steatosis [Not Recovered/Not Resolved]

NARRATIVE: CASE EVENT DATE: 20180601
